FAERS Safety Report 18978800 (Version 1)
Quarter: 2021Q1

REPORT INFORMATION
  Report Type: Spontaneous
  Country: US (occurrence: US)
  Receive Date: 20210308
  Receipt Date: 20210308
  Transmission Date: 20210420
  Serious: No
  Sender: FDA-Public Use
  Company Number: US-CELGENEUS-USA-20210207071

PATIENT
  Age: 55 Year
  Sex: Male

DRUGS (1)
  1. ZEPOSIA [Suspect]
     Active Substance: OZANIMOD HYDROCHLORIDE
     Indication: MULTIPLE SCLEROSIS
     Dosage: .92 MILLIGRAM
     Route: 048
     Dates: start: 20201230

REACTIONS (6)
  - Speech disorder [Unknown]
  - Drug ineffective [Unknown]
  - Impaired healing [Unknown]
  - Balance disorder [Unknown]
  - Feeling cold [Unknown]
  - Confusional state [Unknown]

NARRATIVE: CASE EVENT DATE: 20201230
